FAERS Safety Report 9259385 (Version 1)
Quarter: 2013Q2

REPORT INFORMATION
  Report Type: Spontaneous
  Country: US (occurrence: US)
  Receive Date: 20130428
  Receipt Date: 20130428
  Transmission Date: 20140414
  Serious: No
  Sender: FDA-Public Use
  Company Number: US-BAYER-2013-050717

PATIENT
  Sex: Female

DRUGS (2)
  1. MIDOL EXTENDED RELIEF CAPLET [Suspect]
     Route: 048
  2. MIDOL MENSTRUAL COMPLETE FORMULA [Suspect]
     Dosage: UNK
     Route: 048

REACTIONS (2)
  - Incorrect dose administered [None]
  - Drug ineffective [None]
